FAERS Safety Report 9237457 (Version 1)
Quarter: 2013Q2

REPORT INFORMATION
  Report Type: Spontaneous
  Country: US (occurrence: US)
  Receive Date: 20130417
  Receipt Date: 20130417
  Transmission Date: 20140414
  Serious: No
  Sender: FDA-Public Use
  Company Number: US-PFIZER INC-2013116077

PATIENT
  Sex: Female
  Weight: 93.42 kg

DRUGS (3)
  1. LEVOTHYROXINE SODIUM [Suspect]
     Indication: THYROID DISORDER
     Dosage: UNK
  2. SYNTHROID [Suspect]
     Indication: THYROID DISORDER
     Dosage: UNK
  3. UNITHROID [Suspect]
     Indication: THYROID DISORDER
     Dosage: UNK

REACTIONS (2)
  - Hypersensitivity [Unknown]
  - Drug ineffective [Unknown]
